FAERS Safety Report 5381783-3 (Version None)
Quarter: 2007Q3

REPORT INFORMATION
  Report Type: 
  Country: None (occurrence: None)
  Receive Date: 20070709
  Receipt Date: 20070628
  Transmission Date: 20080115
  Serious: Yes (Other)
  Sender: FDA-Public Use
  Company Number: CA-JNJFOC-20070700408

PATIENT
  Sex: Female
  Weight: 85 kg

DRUGS (1)
  1. REMICADE [Suspect]
     Indication: RHEUMATOID ARTHRITIS
     Route: 042
     Dates: start: 20040719

REACTIONS (5)
  - FATIGUE [None]
  - GALLBLADDER DISORDER [None]
  - HEADACHE [None]
  - HERPES ZOSTER [None]
  - NAUSEA [None]
